FAERS Safety Report 24694513 (Version 2)
Quarter: 2024Q4

REPORT INFORMATION
  Report Type: Report from Study
  Country: BR (occurrence: BR)
  Receive Date: 20241204
  Receipt Date: 20241214
  Transmission Date: 20250115
  Serious: Yes (Other)
  Sender: CELLTRION
  Company Number: BR-CELLTRION INC.-2024BR030210

PATIENT

DRUGS (6)
  1. INFLIXIMAB-DYYB [Suspect]
     Active Substance: INFLIXIMAB-DYYB
     Indication: Crohn^s disease
     Dosage: 400 MG EVERY 40 DAYS
     Route: 042
     Dates: start: 20221121
  2. BISOPROLOL FUMARATE [Concomitant]
     Active Substance: BISOPROLOL FUMARATE
     Indication: Arrhythmia
     Dosage: 1 PILL A DAY
     Route: 048
     Dates: start: 2016
  3. BISOPROLOL FUMARATE [Concomitant]
     Active Substance: BISOPROLOL FUMARATE
     Indication: Hypertension
  4. DULOXETINE HYDROCHLORIDE [Concomitant]
     Active Substance: DULOXETINE HYDROCHLORIDE
     Indication: Arthralgia
     Dosage: 1 PILL AT NIGHT
     Route: 048
     Dates: start: 2016
  5. CITALOPRAM [Concomitant]
     Active Substance: CITALOPRAM
     Indication: Anxiety
     Dosage: 1 PILL A DAY
     Route: 048
     Dates: start: 202407
  6. UNSPECIFIED INGREDIENT [Concomitant]
     Active Substance: UNSPECIFIED INGREDIENT
     Indication: Contraception
     Dosage: TAKES IT FOR 42 DAYS AND TAKES A 7-DAY BREAK
     Route: 048
     Dates: start: 2015

REACTIONS (5)
  - Nephrolithiasis [Recovering/Resolving]
  - Crohn^s disease [Recovering/Resolving]
  - Dermatitis [Unknown]
  - Therapeutic response shortened [Unknown]
  - Intentional product use issue [Unknown]
